FAERS Safety Report 7901361-9 (Version None)
Quarter: 2011Q4

REPORT INFORMATION
  Report Type: 
  Country: None (occurrence: None)
  Receive Date: 20111108
  Receipt Date: 20111103
  Transmission Date: 20120403
  Serious: Yes (Other)
  Sender: FDA-Public Use
  Company Number: PHEH2011US008636

PATIENT
  Sex: Female
  Weight: 47.619 kg

DRUGS (2)
  1. TOBI [Suspect]
     Indication: CYSTIC FIBROSIS
     Dosage: 300 MG, BID EVERY OTHER MONTH, 28 DAYS ON 28 DAYS OFF
     Dates: start: 20110928
  2. PULMOZYME [Concomitant]
     Indication: CYSTIC FIBROSIS

REACTIONS (1)
  - UPPER RESPIRATORY TRACT INFECTION [None]
